FAERS Safety Report 5621708-6 (Version None)
Quarter: 2008Q1

REPORT INFORMATION
  Report Type: 
  Country: None (occurrence: None)
  Receive Date: 20080211
  Receipt Date: 20080201
  Transmission Date: 20080703
  Serious: Yes (Hospitalization)
  Sender: FDA-Public Use
  Company Number: PHBS2008FR01658

PATIENT
  Age: 46 Year
  Sex: Male

DRUGS (4)
  1. PARLODEL [Suspect]
     Indication: PARKINSON'S DISEASE
     Dosage: 10 MG/DAY
     Route: 048
     Dates: start: 20010101, end: 20070724
  2. MADOPAR [Suspect]
     Indication: PARKINSON'S DISEASE
     Dosage: 2 DF, UNK
     Route: 048
     Dates: start: 20040101, end: 20070723
  3. MADOPAR [Suspect]
     Dosage: 2 DF, UNK
     Route: 048
     Dates: start: 20070723, end: 20070723
  4. MADOPAR [Suspect]
     Dosage: 3 DF, UNK
     Route: 048
     Dates: start: 20070724

REACTIONS (1)
  - PATHOLOGICAL GAMBLING [None]
